FAERS Safety Report 9387036 (Version 1)
Quarter: 2013Q3

REPORT INFORMATION
  Report Type: Spontaneous
  Country: US (occurrence: US)
  Receive Date: 20130708
  Receipt Date: 20130708
  Transmission Date: 20140515
  Serious: No
  Sender: FDA-Public Use
  Company Number: US-BRISTOL-MYERS SQUIBB COMPANY-17343401

PATIENT
  Age: 1 Year
  Sex: Male
  Weight: 13.15 kg

DRUGS (2)
  1. ABILIFY DISCMELT TABS [Suspect]
     Indication: AUTISM
     Route: 048
     Dates: start: 20130131, end: 20130201
  2. ABILIFY DISCMELT TABS [Suspect]
     Indication: AGGRESSION
     Route: 048
     Dates: start: 20130131, end: 20130201

REACTIONS (11)
  - Off label use [Unknown]
  - Somnolence [Unknown]
  - Tremor [Recovered/Resolved]
  - Irritability [Unknown]
  - Poor quality sleep [Unknown]
  - Gait disturbance [Unknown]
  - Abasia [Unknown]
  - Staring [Unknown]
  - Drooling [Unknown]
  - Restlessness [Unknown]
  - Affect lability [Unknown]
